FAERS Safety Report 15542888 (Version 2)
Quarter: 2018Q4

REPORT INFORMATION
  Report Type: Spontaneous
  Country: JP (occurrence: JP)
  Receive Date: 20181023
  Receipt Date: 20181226
  Transmission Date: 20190205
  Serious: Yes (Death)
  Sender: FDA-Public Use
  Company Number: PHJP2018JP018233

PATIENT
  Age: 75 Year
  Sex: Female

DRUGS (2)
  1. COSENTYX [Suspect]
     Active Substance: SECUKINUMAB
     Dosage: 300 MG, 4W
     Route: 058
     Dates: start: 20180921, end: 20181019
  2. COSENTYX [Suspect]
     Active Substance: SECUKINUMAB
     Indication: PUSTULAR PSORIASIS
     Dosage: 300 MG, QW
     Route: 058
     Dates: start: 20180724, end: 20180821

REACTIONS (4)
  - Oxygen saturation decreased [Fatal]
  - Concomitant disease aggravated [Fatal]
  - Peripheral T-cell lymphoma unspecified [Fatal]
  - Blood pressure systolic decreased [Fatal]

NARRATIVE: CASE EVENT DATE: 20180830
